FAERS Safety Report 5806387-7 (Version None)
Quarter: 2008Q3

REPORT INFORMATION
  Report Type: 
  Country: None (occurrence: None)
  Receive Date: 20080710
  Receipt Date: 20080701
  Transmission Date: 20090109
  Serious: Yes (Death, Hospitalization)
  Sender: FDA-Public Use
  Company Number: DE-PFIZER INC-2005024856

PATIENT
  Sex: Male
  Weight: 60 kg

DRUGS (9)
  1. IRINOTECAN HCL [Suspect]
     Indication: SMALL CELL LUNG CANCER STAGE UNSPECIFIED
     Route: 042
     Dates: start: 20040529, end: 20040804
  2. CISPLATIN [Suspect]
     Indication: SMALL CELL LUNG CANCER STAGE UNSPECIFIED
     Route: 042
     Dates: start: 20040529, end: 20040728
  3. VIOXX [Concomitant]
     Route: 048
  4. TRAMAL [Concomitant]
     Dates: start: 20040501, end: 20040616
  5. BISOPROLOL FUMARATE [Concomitant]
     Route: 048
  6. MORPHINE SULFATE [Concomitant]
     Route: 048
  7. ALLOPURINOL [Concomitant]
     Route: 048
  8. THIOCTACID [Concomitant]
     Route: 048
  9. GENERAL NUTRIENTS/VITAMINS NOS [Concomitant]
     Dates: start: 20040618, end: 20040621

REACTIONS (2)
  - CONVULSION [None]
  - LOSS OF CONSCIOUSNESS [None]
